FAERS Safety Report 6265533-4 (Version None)
Quarter: 2009Q3

REPORT INFORMATION
  Report Type: 
  Country: None (occurrence: None)
  Receive Date: 20090709
  Receipt Date: 20090709
  Transmission Date: 20100115
  Serious: Yes (Hospitalization)
  Sender: FDA-Public Use
  Company Number: None

PATIENT
  Age: 74 Year
  Sex: Male

DRUGS (14)
  1. DIGOXIN [Suspect]
     Indication: CARDIAC FAILURE CHRONIC
     Dosage: 0.125MG DAILY PO, CHRONIC
     Route: 048
  2. LANOXIN [Concomitant]
  3. LIPITOR [Concomitant]
  4. METOLAZONE [Concomitant]
  5. PLAVIX [Concomitant]
  6. SPIRONOLACTONE [Concomitant]
  7. VIT C [Concomitant]
  8. ZINC GLUCONATE [Concomitant]
  9. ASPIRIN [Concomitant]
  10. CENTRUM SILVER [Concomitant]
  11. COENZYME Q10 [Concomitant]
  12. COREG CR [Concomitant]
  13. FUROSEMIDE [Concomitant]
  14. GARLIC [Concomitant]

REACTIONS (10)
  - ABDOMINAL PAIN [None]
  - CONGESTIVE CARDIOMYOPATHY [None]
  - DECREASED APPETITE [None]
  - DEHYDRATION [None]
  - EATING DISORDER [None]
  - GASTROINTESTINAL HAEMORRHAGE [None]
  - HYPOTENSION [None]
  - RENAL FAILURE ACUTE [None]
  - SEPTIC SHOCK [None]
  - THERAPEUTIC AGENT TOXICITY [None]
